FAERS Safety Report 5184810-1 (Version None)
Quarter: 2006Q4

REPORT INFORMATION
  Report Type: 
  Country: None (occurrence: None)
  Receive Date: 20061220
  Receipt Date: 20060426
  Transmission Date: 20070319
  Serious: No
  Sender: FDA-Public Use
  Company Number: US-GLAXOSMITHKLINE-A0603323A

PATIENT
  Age: 27 Year
  Sex: Male

DRUGS (1)
  1. NICODERM CQ [Suspect]
     Dates: start: 20060424, end: 20060426

REACTIONS (2)
  - BACK PAIN [None]
  - MUSCLE SPASMS [None]
